FAERS Safety Report 8878663 (Version 1)
Quarter: 2012Q4

REPORT INFORMATION
  Report Type: 
  Country: FR (occurrence: FR)
  Receive Date: 20121026
  Receipt Date: 20121026
  Transmission Date: 20130627
  Serious: Yes (Hospitalization, Other)
  Sender: FDA-Public Use
  Company Number: PHHY2012FR094554

PATIENT
  Age: 53 Year
  Sex: Male

DRUGS (9)
  1. LEPONEX [Suspect]
     Indication: SCHIZOPHRENIA, PARANOID TYPE
     Dosage: 250 mg
     Route: 048
     Dates: end: 20120703
  2. DEPAKOTE [Concomitant]
     Indication: SCHIZOAFFECTIVE DISORDER
     Dosage: 1250 mg
     Route: 048
  3. VALIUM [Concomitant]
  4. DIAZEPAM [Concomitant]
     Dosage: 20 mg Daily
     Route: 048
  5. VALDOXAN [Concomitant]
     Indication: SCHIZOAFFECTIVE DISORDER
     Dosage: 2 DF, QD
     Route: 048
  6. THERALENE [Concomitant]
     Dosage: 20 mg daily
     Route: 048
  7. IMOVANE [Concomitant]
     Indication: INSOMNIA
     Dosage: 7.5 mg
     Route: 048
  8. TAMSULOSIN [Concomitant]
     Indication: HYPERTROPHY
     Dosage: 0.4 mg Daily
     Route: 048
  9. SODIUM CHLORIDE [Concomitant]
     Dosage: 3 g Daily
     Route: 042
     Dates: end: 20120629

REACTIONS (11)
  - Leukocytoclastic vasculitis [Recovered/Resolved]
  - Oedema [Recovering/Resolving]
  - Purpura [Recovering/Resolving]
  - Antineutrophil cytoplasmic antibody increased [Recovering/Resolving]
  - Anti-transglutaminase antibody increased [Recovering/Resolving]
  - Systemic inflammatory response syndrome [Recovering/Resolving]
  - Red blood cell sedimentation rate increased [Recovering/Resolving]
  - C-reactive protein increased [Recovering/Resolving]
  - General physical health deterioration [Recovering/Resolving]
  - Weight decreased [Recovered/Resolved]
  - Weight increased [Recovering/Resolving]
